FAERS Safety Report 14241152 (Version 7)
Quarter: 2018Q2

REPORT INFORMATION
  Report Type: Spontaneous
  Country: ES (occurrence: ES)
  Receive Date: 20171130
  Receipt Date: 20180509
  Transmission Date: 20180711
  Serious: Yes (Hospitalization, Other)
  Sender: FDA-Public Use
  Company Number: ES-TERSERA THERAPEUTICS, LLC-2036407

PATIENT
  Age: 82 Year
  Sex: Male
  Weight: 74 kg

DRUGS (10)
  1. ENALAPRIL MALEATE. [Concomitant]
     Active Substance: ENALAPRIL MALEATE
     Dates: start: 20151222
  2. PREDNISONE. [Suspect]
     Active Substance: PREDNISONE
     Route: 048
     Dates: start: 20161228
  3. OMEPRAZOLE. [Concomitant]
     Active Substance: OMEPRAZOLE
     Dates: start: 20050101
  4. TAMSULOSIN HYDROCHLORIDE. [Concomitant]
     Active Substance: TAMSULOSIN HYDROCHLORIDE
     Dates: start: 201504
  5. ZYTIGA [Suspect]
     Active Substance: ABIRATERONE ACETATE
     Route: 048
     Dates: start: 20161228
  6. ENZALUTAMIDE [Suspect]
     Active Substance: ENZALUTAMIDE
     Route: 048
     Dates: start: 20151123, end: 20161213
  7. DENOSUMAB [Suspect]
     Active Substance: DENOSUMAB
     Route: 058
     Dates: start: 20170101, end: 20170228
  8. TRANKIMAZIN [Concomitant]
     Active Substance: ALPRAZOLAM
     Dates: start: 20150501
  9. ZOLADEX [Suspect]
     Active Substance: GOSERELIN ACETATE
     Indication: PROSTATE CANCER
     Route: 058
     Dates: start: 200511
  10. LORMETAZEPAM [Concomitant]
     Active Substance: LORMETAZEPAM
     Dates: start: 20050101

REACTIONS (6)
  - Muscular weakness [Unknown]
  - Urinary tract infection [Recovered/Resolved]
  - Metastases to bone [Unknown]
  - Off label use [Unknown]
  - Metastases to spine [Unknown]
  - Incorrect dose administered [Unknown]

NARRATIVE: CASE EVENT DATE: 20171004
